FAERS Safety Report 6687035-3 (Version None)
Quarter: 2010Q2

REPORT INFORMATION
  Report Type: 
  Country: None (occurrence: None)
  Receive Date: 20100419
  Receipt Date: 20100414
  Transmission Date: 20101027
  Serious: Yes (Hospitalization, Other)
  Sender: FDA-Public Use
  Company Number: US-RB-000373-10

PATIENT
  Age: 38 Year
  Sex: Female

DRUGS (4)
  1. SUBOXONE [Suspect]
     Route: 060
     Dates: start: 20091026
  2. AMBIEN [Suspect]
     Indication: INSOMNIA
     Dosage: DOSING DETAILS UNKNOWN
     Route: 065
  3. ELAVIL [Suspect]
     Indication: INSOMNIA
     Dosage: DOSING DETAILS UNKNOWN
     Route: 065
     Dates: end: 20100214
  4. KLONOPIN [Suspect]
     Indication: ANXIETY
     Dosage: DOSING DETAILS UNKNOWN
     Route: 065

REACTIONS (5)
  - DRUG DEPENDENCE [None]
  - DRUG INTERACTION [None]
  - HOMICIDAL IDEATION [None]
  - PHANTOM PAIN [None]
  - STRESS [None]
